FAERS Safety Report 6997686-4 (Version None)
Quarter: 2010Q3

REPORT INFORMATION
  Report Type: 
  Country: None (occurrence: None)
  Receive Date: 20100918
  Receipt Date: 20091123
  Transmission Date: 20110219
  Serious: No
  Sender: FDA-Public Use
  Company Number: US-WYE-H12314609

PATIENT
  Sex: Male
  Weight: 73.55 kg

DRUGS (4)
  1. PRISTIQ [Suspect]
     Indication: DEPRESSION
     Route: 048
     Dates: start: 20080101, end: 20091101
  2. PRISTIQ [Suspect]
     Route: 048
     Dates: start: 20091101
  3. PROTONIX [Concomitant]
  4. XANAX [Concomitant]

REACTIONS (3)
  - BLOOD PRESSURE INCREASED [None]
  - DECREASED APPETITE [None]
  - WEIGHT DECREASED [None]
